FAERS Safety Report 4397583-7 (Version None)
Quarter: 2004Q3

REPORT INFORMATION
  Report Type: 
  Country: None (occurrence: None)
  Receive Date: 20040709
  Receipt Date: 20040624
  Transmission Date: 20050211
  Serious: Yes (Hospitalization)
  Sender: FDA-Public Use
  Company Number: 2004GB01253

PATIENT
  Age: 73 Year
  Sex: Male
  Weight: 83 kg

DRUGS (6)
  1. CASODEX [Suspect]
     Indication: PROSTATE CANCER
     Dosage: 150 MG QD PO
     Route: 048
     Dates: start: 20010401, end: 20040405
  2. ZOLADEX [Suspect]
     Indication: PROSTATE CANCER
     Dosage: 3.6 MG MMONTH SQ
     Route: 058
     Dates: start: 20040216, end: 20040322
  3. ZOLADEX [Suspect]
     Indication: PROSTATE CANCER
     Dosage: 10.8 MG Q3MO SQ
     Route: 058
     Dates: start: 20040323
  4. BENDROFLUAZIDE [Concomitant]
  5. WARFARIN SODIUM [Concomitant]
  6. ATORVASTATIN CALCIUM [Concomitant]

REACTIONS (7)
  - ABDOMINAL PAIN [None]
  - CALCINOSIS [None]
  - CYST [None]
  - FEELING ABNORMAL [None]
  - GYNAECOMASTIA [None]
  - JAUNDICE CHOLESTATIC [None]
  - PROSTATIC SPECIFIC ANTIGEN INCREASED [None]
